FAERS Safety Report 9345120 (Version 1)
Quarter: 2013Q2

REPORT INFORMATION
  Report Type: Spontaneous
  Country: US (occurrence: US)
  Receive Date: 20130612
  Receipt Date: 20130612
  Transmission Date: 20140414
  Serious: Yes (Hospitalization)
  Sender: FDA-Public Use
  Company Number: US-BAXTER-2013BAX021257

PATIENT
  Age: 48 Year
  Sex: Female

DRUGS (4)
  1. DIANEAL LOW CALCIUM [Suspect]
     Indication: PERITONEAL DIALYSIS
     Route: 033
     Dates: start: 201203, end: 201305
  2. DIANEAL LOW CALCIUM [Suspect]
     Route: 033
     Dates: start: 201305
  3. DIANEAL LOW CALCIUM [Suspect]
     Indication: PERITONEAL DIALYSIS
     Route: 033
     Dates: start: 201203, end: 201305
  4. DIANEAL LOW CALCIUM [Suspect]
     Route: 033
     Dates: start: 201305

REACTIONS (2)
  - Diarrhoea [Not Recovered/Not Resolved]
  - Cardiac failure congestive [Unknown]
